FAERS Safety Report 10039018 (Version 1)
Quarter: 2014Q1

REPORT INFORMATION
  Report Type: Spontaneous
  Country: US (occurrence: None)
  Receive Date: 20140306
  Receipt Date: 20140306
  Transmission Date: 20141002
  Serious: Yes (Hospitalization)
  Sender: FDA-Public Use
  Company Number: 163-21880-13052827

PATIENT
  Age: 89 Year
  Sex: Male

DRUGS (4)
  1. REVLIMID (LENALIDOMIDE) (CAPSULES) [Suspect]
     Indication: PLASMA CELL MYELOMA
     Dosage: 10MG, 21 IN 21 D, PO
     Route: 048
     Dates: start: 20130118
  2. OMEPRAZOLE (OMEPRAZOLE) [Concomitant]
  3. DOXYCYCLINE MONOHYDRATE (DOXYCYCLINE MONOHYDRATE) [Concomitant]
  4. RANITIDINE (RANITIDINE) [Concomitant]

REACTIONS (1)
  - Renal failure [None]
